FAERS Safety Report 19992967 (Version 2)
Quarter: 2021Q4

REPORT INFORMATION
  Report Type: Report from Study
  Country: None (occurrence: US)
  Receive Date: 20211026
  Receipt Date: 20211028
  Transmission Date: 20220303
  Serious: Yes (Hospitalization, Other)
  Sender: FDA-Public Use
  Company Number: US-ABBVIE-21K-163-4130462-00

PATIENT
  Age: 63 Year
  Sex: Female
  Weight: 77.18 kg

DRUGS (22)
  1. RINVOQ [Suspect]
     Active Substance: UPADACITINIB
     Indication: Rheumatoid arthritis
     Route: 048
     Dates: start: 20200512
  2. PLAQUENIL [Concomitant]
     Active Substance: HYDROXYCHLOROQUINE SULFATE
     Indication: Product used for unknown indication
     Dates: start: 20111115
  3. ORENCIA [Concomitant]
     Active Substance: ABATACEPT
     Indication: Product used for unknown indication
     Dates: start: 20141115, end: 20170815
  4. METHOTREXATE [Concomitant]
     Active Substance: METHOTREXATE
     Indication: Product used for unknown indication
     Dates: start: 20180615, end: 20200715
  5. XELJANZ XR [Concomitant]
     Active Substance: TOFACITINIB CITRATE
     Indication: Product used for unknown indication
     Dates: start: 20171020, end: 20200512
  6. AMLODIPINE [Concomitant]
     Active Substance: AMLODIPINE BESYLATE
     Indication: Product used for unknown indication
  7. ATORVASTATIN [Concomitant]
     Active Substance: ATORVASTATIN
     Indication: Product used for unknown indication
  8. ESCITALOPRAM [Concomitant]
     Active Substance: ESCITALOPRAM OXALATE
     Indication: Product used for unknown indication
  9. GABAPENTIN [Concomitant]
     Active Substance: GABAPENTIN
     Indication: Product used for unknown indication
  10. LAMOTRIGINE [Concomitant]
     Active Substance: LAMOTRIGINE
     Indication: Product used for unknown indication
  11. LEVOTHYROXINE [Concomitant]
     Active Substance: LEVOTHYROXINE
     Indication: Product used for unknown indication
  12. LISINOPRIL [Concomitant]
     Active Substance: LISINOPRIL
     Indication: Product used for unknown indication
  13. TRAZODONE [Concomitant]
     Active Substance: TRAZODONE HYDROCHLORIDE
     Indication: Product used for unknown indication
  14. ASPIRIN [Concomitant]
     Active Substance: ASPIRIN
     Indication: Product used for unknown indication
     Dates: start: 20200721
  15. KETOROLAC [Concomitant]
     Active Substance: KETOROLAC TROMETHAMINE
     Indication: Product used for unknown indication
     Dates: start: 20200621
  16. SUMATRIPTAN [Concomitant]
     Active Substance: SUMATRIPTAN
     Indication: Product used for unknown indication
     Dates: start: 20200621
  17. ESOMEPRAZOLE. [Concomitant]
     Active Substance: ESOMEPRAZOLE MAGNESIUM
     Indication: Product used for unknown indication
  18. FOLIC ACID [Concomitant]
     Active Substance: FOLIC ACID
     Indication: Product used for unknown indication
  19. OXYCODONE [Concomitant]
     Active Substance: OXYCODONE
     Indication: Product used for unknown indication
  20. PFIZER-BIONTECH COVID-19 VACCINE [Concomitant]
     Active Substance: TOZINAMERAN
     Indication: COVID-19 immunisation
     Route: 030
     Dates: start: 20210211, end: 20210211
  21. PFIZER-BIONTECH COVID-19 VACCINE [Concomitant]
     Active Substance: TOZINAMERAN
     Route: 030
     Dates: start: 20210309, end: 20210309
  22. PFIZER-BIONTECH COVID-19 VACCINE [Concomitant]
     Active Substance: TOZINAMERAN
     Dosage: BOOSTER DOSE
     Route: 030
     Dates: start: 20210820, end: 20210820

REACTIONS (3)
  - Iron deficiency anaemia [Recovering/Resolving]
  - Headache [Recovered/Resolved]
  - Acute kidney injury [Unknown]

NARRATIVE: CASE EVENT DATE: 20200619
